FAERS Safety Report 9064494 (Version 1)
Quarter: 2013Q1

REPORT INFORMATION
  Report Type: Spontaneous
  Country: US (occurrence: US)
  Receive Date: 20130214
  Receipt Date: 20130214
  Transmission Date: 20140127
  Serious: No
  Sender: FDA-Public Use
  Company Number: US-009507513-1302USA004598

PATIENT
  Sex: Female

DRUGS (4)
  1. PEG-INTRON [Suspect]
     Indication: HEPATITIS C
     Dosage: UNK
     Dates: start: 20030101, end: 20030501
  2. PEG-INTRON [Suspect]
     Dosage: UNK
     Dates: start: 20130128
  3. RIBAVIRIN [Suspect]
     Indication: HEPATITIS C
     Dosage: UNK
     Route: 048
     Dates: start: 20030101, end: 20030501
  4. RIBAVIRIN [Suspect]
     Dosage: UNK
     Route: 048
     Dates: start: 20130128

REACTIONS (19)
  - Hyperhidrosis [Unknown]
  - Asthenia [Unknown]
  - Drug ineffective [Unknown]
  - Therapeutic response decreased [Unknown]
  - Fatigue [Unknown]
  - Decreased appetite [Unknown]
  - Injection site reaction [Unknown]
  - Rash [Unknown]
  - Influenza like illness [Unknown]
  - Chills [Unknown]
  - Memory impairment [Unknown]
  - Disturbance in attention [Unknown]
  - Dyspnoea [Unknown]
  - Asthenia [Unknown]
  - Fatigue [Unknown]
  - Dry mouth [Unknown]
  - Decreased appetite [Unknown]
  - Chest pain [Unknown]
  - Arthralgia [Unknown]
